FAERS Safety Report 18373094 (Version 2)
Quarter: 2020Q4

REPORT INFORMATION
  Report Type: Report from Study
  Country: BR (occurrence: BR)
  Receive Date: 20201012
  Receipt Date: 20201226
  Transmission Date: 20210114
  Serious: Yes (Other)
  Sender: FDA-Public Use
  Company Number: BR-UCBSA-2020040222

PATIENT
  Age: 39 Year
  Sex: Female
  Weight: 63 kg

DRUGS (17)
  1. KETOROLAC [Concomitant]
     Active Substance: KETOROLAC TROMETHAMINE
     Indication: RHEUMATOID ARTHRITIS
     Dosage: 1 TABLET A DAY
     Route: 048
     Dates: start: 2020
  2. DIPYRONE [Concomitant]
     Active Substance: DIPYRONE
     Dosage: 250 MILLIGRAM, 3X/DAY (TID)
     Route: 048
     Dates: start: 20201215
  3. MORPHINE [Concomitant]
     Active Substance: MORPHINE
     Indication: URINARY TRACT INFECTION
     Dosage: UNK
     Route: 042
     Dates: start: 20201215, end: 20201215
  4. VITAMIN C [CALCIUM ASCORBATE] [Concomitant]
     Active Substance: CALCIUM ASCORBATE
     Indication: RHEUMATOID ARTHRITIS
     Dosage: 1 DOSAGE FORM, 3X/WEEK
     Route: 048
     Dates: start: 20170930
  5. VITAMIN D [VITAMIN D NOS] [Concomitant]
     Active Substance: VITAMIN D NOS
     Dosage: 7 THOUSAND EVERY OTHER DAY
     Route: 048
     Dates: start: 2017
  6. MICROVLAR [Concomitant]
     Active Substance: ETHINYL ESTRADIOL\LEVONORGESTREL
     Indication: PRODUCT USED FOR UNKNOWN INDICATION
     Dosage: 1 DOSAGE FORM, ONCE DAILY (QD)
     Route: 048
     Dates: start: 2000
  7. METOTREXATO [METHOTREXATE] [Concomitant]
     Active Substance: METHOTREXATE
     Indication: RHEUMATOID ARTHRITIS
     Dosage: 4 DOSAGE FORM, WEEKLY (QW)
     Route: 048
     Dates: start: 20170930
  8. VITAMIN D [VITAMIN D NOS] [Concomitant]
     Active Substance: VITAMIN D NOS
     Indication: RHEUMATOID ARTHRITIS
     Dosage: 1 DOSAGE FORM, 4X/WEEK
     Route: 048
     Dates: start: 20170930
  9. CIPROFLOXACIN HYDROCHLORIDE. [Concomitant]
     Active Substance: CIPROFLOXACIN HYDROCHLORIDE
     Indication: URINARY TRACT INFECTION
     Dosage: 1000 MILLIGRAM, ONCE DAILY (QD)
     Route: 048
     Dates: start: 20201215
  10. PHENAZOPYRIDINE. [Concomitant]
     Active Substance: PHENAZOPYRIDINE
     Indication: URINARY TRACT INFECTION
     Dosage: 3 DOSAGE FORM, ONCE DAILY (QD)
     Route: 048
     Dates: start: 20201215
  11. CERTOLIZUMAB PEGOL RA [Suspect]
     Active Substance: CERTOLIZUMAB PEGOL
     Dosage: 400 MILLIGRAM, MONTHLY (QM)
     Route: 058
     Dates: start: 20200731, end: 202008
  12. CERTOLIZUMAB PEGOL RA [Suspect]
     Active Substance: CERTOLIZUMAB PEGOL
     Indication: RHEUMATOID ARTHRITIS
     Dosage: 400 MILLIGRAM, MONTHLY (QM)
     Route: 058
     Dates: end: 20200725
  13. FOLIC ACID. [Concomitant]
     Active Substance: FOLIC ACID
     Indication: RHEUMATOID ARTHRITIS
     Dosage: 2 DOSAGE FORM, WEEKLY (QW)
     Route: 048
     Dates: start: 20170930
  14. BUSCOPAN [Concomitant]
     Active Substance: BUTYLSCOPOLAMINE BROMIDE
     Indication: URINARY TRACT INFECTION
     Dosage: 10 MILLIGRAM, 3X/DAY (TID)
     Route: 048
     Dates: start: 20201215
  15. TRAMADOL. [Concomitant]
     Active Substance: TRAMADOL
     Indication: URINARY TRACT INFECTION
     Dosage: UNK
     Route: 042
     Dates: start: 20201215, end: 20201215
  16. VITAMIN C [CALCIUM ASCORBATE] [Concomitant]
     Active Substance: CALCIUM ASCORBATE
     Dosage: 7 THOUSAND EVERY OTHER DAY
     Route: 048
     Dates: start: 2017
  17. CLONAZEPAN [Concomitant]
     Active Substance: CLONAZEPAM
     Indication: INSOMNIA
     Dosage: 2MG?HALF TABLET
     Route: 048

REACTIONS (8)
  - Vomiting [Not Recovered/Not Resolved]
  - Rheumatoid arthritis [Unknown]
  - Tonsillitis [Unknown]
  - COVID-19 [Unknown]
  - Headache [Not Recovered/Not Resolved]
  - Urinary tract infection [Not Recovered/Not Resolved]
  - Gastritis [Not Recovered/Not Resolved]
  - Weight increased [Unknown]

NARRATIVE: CASE EVENT DATE: 20190303
